FAERS Safety Report 5571257-9 (Version None)
Quarter: 2007Q4

REPORT INFORMATION
  Report Type: 
  Country: None (occurrence: None)
  Receive Date: 20071221
  Receipt Date: 20070411
  Transmission Date: 20080405
  Serious: No
  Sender: FDA-Public Use
  Company Number: A0645247A

PATIENT
  Age: 55 Year
  Sex: Male
  Weight: 74.5 kg

DRUGS (1)
  1. FLONASE [Suspect]
     Dosage: 1SPR TWICE PER DAY
     Route: 045
     Dates: start: 20070328, end: 20070329

REACTIONS (2)
  - DYSPNOEA [None]
  - THROAT TIGHTNESS [None]
